FAERS Safety Report 7326680-9 (Version None)
Quarter: 2011Q1

REPORT INFORMATION
  Report Type: 
  Country: None (occurrence: None)
  Receive Date: 20110223
  Receipt Date: 20110208
  Transmission Date: 20110831
  Serious: Yes (Hospitalization, Other)
  Sender: FDA-Public Use
  Company Number: UTC-001397

PATIENT
  Age: 29 Year
  Sex: Female
  Weight: 119.8 kg

DRUGS (10)
  1. XANAX [Concomitant]
  2. LITHIUM (LITHIUM) [Concomitant]
  3. TYVASO [Suspect]
     Indication: PULMONARY ARTERIAL HYPERTENSION
     Dosage: 192 MCG (48 MCG, 4 IN 1 D), INHALATION
     Route: 055
     Dates: start: 20100810
  4. LASIX [Concomitant]
  5. OXYCODONE (OXYCODONE) [Concomitant]
  6. TYVASO [Suspect]
  7. REVATIO [Concomitant]
  8. POTASSIUM CHLORIDE [Concomitant]
  9. SEROQUEL (QUETIAPINE FURMARATE) [Concomitant]
  10. ZOLOFT [Concomitant]

REACTIONS (14)
  - CARDIAC ARREST [None]
  - PAIN IN JAW [None]
  - DECREASED APPETITE [None]
  - WITHDRAWAL SYNDROME [None]
  - DIZZINESS [None]
  - HEADACHE [None]
  - FATIGUE [None]
  - NAUSEA [None]
  - HEAD INJURY [None]
  - VOMITING [None]
  - PAIN IN EXTREMITY [None]
  - SYNCOPE [None]
  - DIARRHOEA [None]
  - MULTIPLE SCLEROSIS [None]
